FAERS Safety Report 13282266 (Version 7)
Quarter: 2018Q1

REPORT INFORMATION
  Report Type: Report from Study
  Country: DE (occurrence: DE)
  Receive Date: 20170301
  Receipt Date: 20180322
  Transmission Date: 20180508
  Serious: Yes (Hospitalization)
  Sender: FDA-Public Use
  Company Number: DE-BIOGEN-2017BI00363379

PATIENT
  Age: 32 Year
  Sex: Female
  Weight: 59 kg

DRUGS (5)
  1. FERROSANOL DUODENAL [Concomitant]
     Active Substance: FERROGLYCINE SULFATE
     Indication: IRON DEFICIENCY ANAEMIA
     Dosage: DAILY DOSE: 100 MG MILLGRAM(S) EVERY DAYS
     Route: 048
     Dates: start: 20160706
  2. SATIVEX [Concomitant]
     Active Substance: NABIXIMOLS
     Indication: MUSCLE SPASTICITY
     Dosage: 1 PUFF AS NEEDED
     Route: 055
     Dates: start: 20160215
  3. LEVETIRACETAM. [Concomitant]
     Active Substance: LEVETIRACETAM
     Indication: CONVULSION PROPHYLAXIS
     Dosage: DAILY DOSE: 1125 MG MILLGRAM(S) EVERY DAYS
     Route: 048
     Dates: start: 20160804
  4. GABAPENTIN. [Concomitant]
     Active Substance: GABAPENTIN
     Indication: PARAESTHESIA
     Route: 048
     Dates: start: 20140130
  5. TYSABRI [Suspect]
     Active Substance: NATALIZUMAB
     Indication: MULTIPLE SCLEROSIS
     Dosage: INFUSED OVER 1 HOUR
     Route: 042
     Dates: start: 20150119

REACTIONS (2)
  - Sinus bradycardia [Recovered/Resolved with Sequelae]
  - Multiple sclerosis relapse [Recovered/Resolved]

NARRATIVE: CASE EVENT DATE: 20170109
